FAERS Safety Report 11854453 (Version 2)
Quarter: 2015Q4

REPORT INFORMATION
  Report Type: Report from Study
  Country: BR (occurrence: BR)
  Receive Date: 20151221
  Receipt Date: 20151221
  Transmission Date: 20160305
  Serious: Yes (Other)
  Sender: FDA-Public Use
  Company Number: PHHY2015BR139601

PATIENT
  Sex: Female
  Weight: 85 kg

DRUGS (4)
  1. RASILEZ [Suspect]
     Active Substance: ALISKIREN
     Indication: HYPERTENSION
     Dosage: 1 TABLET (300 MG), QD
     Route: 048
  2. EXFORGE HCT [Suspect]
     Active Substance: AMLODIPINE BESYLATE\HYDROCHLOROTHIAZIDE\VALSARTAN
     Indication: HYPERTENSION
     Dosage: 1 DF (160 + 12.5 + 5), QD
     Route: 048
  3. RASILEZ HCT [Suspect]
     Active Substance: ALISKIREN\HYDROCHLOROTHIAZIDE
     Indication: HYPERTENSION
     Dosage: 1 DF (300/12.5 MG), QD IN THE MORNING (FROM 5 YEARS AGO TO 15 DAYS AGO)
     Route: 048
  4. HYDROCHLOROTHIAZIDE. [Suspect]
     Active Substance: HYDROCHLOROTHIAZIDE
     Indication: HYPERTENSION
     Dosage: HALF DF, (9 DAYS AGO)
     Route: 065

REACTIONS (9)
  - Limb discomfort [Recovered/Resolved]
  - Vein rupture [Recovering/Resolving]
  - Oedema peripheral [Recovered/Resolved]
  - Hypertension [Unknown]
  - Feeling abnormal [Recovered/Resolved]
  - Muscle spasms [Recovered/Resolved]
  - Skin discolouration [Recovered/Resolved]
  - Concomitant disease aggravated [Not Recovered/Not Resolved]
  - Varicose vein [Not Recovered/Not Resolved]
